FAERS Safety Report 16439386 (Version 1)
Quarter: 2019Q2

REPORT INFORMATION
  Report Type: Spontaneous
  Country: CN (occurrence: CN)
  Receive Date: 20190617
  Receipt Date: 20190617
  Transmission Date: 20190711
  Serious: Yes (Other)
  Sender: FDA-Public Use
  Company Number: CN-ROCHE-2326370

PATIENT
  Age: 63 Year
  Sex: Female

DRUGS (11)
  1. CALCIUM FOLINATE [Concomitant]
     Active Substance: LEUCOVORIN CALCIUM
     Route: 065
     Dates: start: 20170107
  2. FLUOROURACIL. [Concomitant]
     Active Substance: FLUOROURACIL
     Indication: ADENOCARCINOMA
     Route: 065
     Dates: start: 20170107
  3. OXALIPLATIN. [Concomitant]
     Active Substance: OXALIPLATIN
     Route: 065
     Dates: start: 201706, end: 201710
  4. LEUCOVORIN [FOLINIC ACID] [Concomitant]
     Active Substance: LEUCOVORIN
     Indication: ADENOCARCINOMA
  5. 5-FLUOROURACIL [FLUOROURACIL] [Concomitant]
     Active Substance: FLUOROURACIL
     Indication: ADENOCARCINOMA
     Route: 065
     Dates: start: 201511
  6. OXALIPLATIN. [Concomitant]
     Active Substance: OXALIPLATIN
     Indication: ADENOCARCINOMA
     Route: 065
     Dates: start: 20170107
  7. BEVACIZUMAB. [Suspect]
     Active Substance: BEVACIZUMAB
     Indication: ADENOCARCINOMA
     Route: 065
     Dates: start: 201706
  8. CALCIUM FOLINATE [Concomitant]
     Active Substance: LEUCOVORIN CALCIUM
     Route: 065
     Dates: start: 201706, end: 201710
  9. FLUOROURACIL. [Concomitant]
     Active Substance: FLUOROURACIL
     Route: 065
     Dates: start: 201706, end: 201710
  10. CAPECITABINE. [Suspect]
     Active Substance: CAPECITABINE
     Indication: ADENOCARCINOMA
     Route: 048
     Dates: start: 20160125
  11. CALCIUM FOLINATE [Concomitant]
     Active Substance: LEUCOVORIN CALCIUM
     Indication: ADENOCARCINOMA
     Route: 065
     Dates: start: 201511

REACTIONS (4)
  - Cell marker increased [Unknown]
  - Carcinoembryonic antigen increased [Unknown]
  - Hepatic cyst [Unknown]
  - Gastrointestinal disorder [Unknown]
